FAERS Safety Report 24760449 (Version 1)
Quarter: 2024Q4

REPORT INFORMATION
  Report Type: Spontaneous
  Country: GB (occurrence: GB)
  Receive Date: 20241220
  Receipt Date: 20241220
  Transmission Date: 20250115
  Serious: Yes (Other)
  Sender: GLAXOSMITHKLINE
  Company Number: None

PATIENT

DRUGS (2)
  1. FLUTICASONE FUROATE\VILANTEROL TRIFENATATE [Suspect]
     Active Substance: FLUTICASONE FUROATE\VILANTEROL TRIFENATATE
     Indication: Product used for unknown indication
     Dosage: 1 DF, QD (ONE PULL EACH 24 HOURS)
     Route: 065
     Dates: start: 20241211
  2. AZITHROMYCIN [Concomitant]
     Active Substance: AZITHROMYCIN
     Indication: Prophylaxis
     Dosage: UNK
     Route: 065

REACTIONS (6)
  - Haemoptysis [Not Recovered/Not Resolved]
  - Nervousness [Recovering/Resolving]
  - Dizziness [Recovered/Resolved]
  - Asthenia [Unknown]
  - Emotional poverty [Unknown]
  - Malaise [Unknown]

NARRATIVE: CASE EVENT DATE: 20241211
